FAERS Safety Report 9874286 (Version 2)
Quarter: 2014Q1

REPORT INFORMATION
  Report Type: Other
  Country: US (occurrence: US)
  Receive Date: 20140206
  Receipt Date: 20140206
  Transmission Date: 20141002
  Serious: No
  Sender: FDA-Public Use
  Company Number: US-ACORDA-ACO_34822_2013

PATIENT
  Age: 42 Year
  Sex: Female
  Weight: 87.75 kg

DRUGS (9)
  1. AMPYRA [Suspect]
     Indication: GAIT DISTURBANCE
     Dosage: 10 MG, Q 12 HRS
     Route: 048
     Dates: start: 20120906, end: 201212
  2. AMPYRA [Suspect]
     Dosage: 10 MG, Q 12 HRS
     Route: 048
     Dates: start: 201212, end: 201212
  3. NEURONTIN [Concomitant]
     Indication: PRODUCT USED FOR UNKNOWN INDICATION
     Dosage: UNK
  4. FENTANYL [Concomitant]
     Indication: PRODUCT USED FOR UNKNOWN INDICATION
     Dosage: UNK
  5. TRAZODONE HCL [Concomitant]
     Indication: PRODUCT USED FOR UNKNOWN INDICATION
     Dosage: UNK
  6. AMITRIPTYLINE HCL [Concomitant]
     Indication: PRODUCT USED FOR UNKNOWN INDICATION
     Dosage: UNK
  7. LODINE [Concomitant]
     Indication: PRODUCT USED FOR UNKNOWN INDICATION
     Dosage: UNK
  8. ATENOLOL [Concomitant]
     Indication: HYPERTENSION
     Dosage: UNK
  9. LISINOPRIL [Concomitant]
     Indication: HYPERLIPIDAEMIA
     Dosage: UNK

REACTIONS (1)
  - Incontinence [Unknown]
